FAERS Safety Report 7594205-9 (Version None)
Quarter: 2011Q3

REPORT INFORMATION
  Report Type: 
  Country: None (occurrence: None)
  Receive Date: 20110706
  Receipt Date: 20110621
  Transmission Date: 20111222
  Serious: Yes (Other)
  Sender: FDA-Public Use
  Company Number: US-PFIZER INC-2011151462

PATIENT
  Age: 29 Year
  Sex: Female

DRUGS (6)
  1. LEVOTHYROXINE SODIUM [Suspect]
  2. ADVIL LIQUI-GELS [Suspect]
  3. OMEPRAZOLE [Suspect]
  4. RIBAVIRIN [Suspect]
     Dosage: UNK
     Dates: start: 20080708, end: 20090612
  5. PEGINTERFERON ALFA-2A [Suspect]
     Dosage: UNK
     Dates: start: 20080708, end: 20090612
  6. CITALOPRAM [Suspect]
     Dosage: UNK

REACTIONS (1)
  - ABORTION SPONTANEOUS [None]
